FAERS Safety Report 17758291 (Version 6)
Quarter: 2020Q3

REPORT INFORMATION
  Report Type: Report from Study
  Country: US (occurrence: US)
  Receive Date: 20200507
  Receipt Date: 20200907
  Transmission Date: 20201102
  Serious: Yes (Hospitalization)
  Sender: FDA-Public Use
  Company Number: NVSC2020US124060

PATIENT
  Sex: Male

DRUGS (1)
  1. ENTRESTO [Suspect]
     Active Substance: SACUBITRIL\VALSARTAN
     Indication: PRODUCT USED FOR UNKNOWN INDICATION
     Dosage: UNK
     Route: 065
     Dates: start: 20200319

REACTIONS (7)
  - Sciatica [Unknown]
  - Blood pressure abnormal [Unknown]
  - Stress [Unknown]
  - Pneumonia [Recovering/Resolving]
  - Emotional distress [Unknown]
  - Pain [Unknown]
  - Back pain [Unknown]
